FAERS Safety Report 9925110 (Version 1)
Quarter: 2014Q1

REPORT INFORMATION
  Report Type: Spontaneous
  Country: US (occurrence: None)
  Receive Date: 20140225
  Receipt Date: 20140225
  Transmission Date: 20141002
  Serious: Yes (Other)
  Sender: FDA-Public Use
  Company Number: None

PATIENT
  Age: 63 Year
  Sex: Male
  Weight: 113.4 kg

DRUGS (1)
  1. LEVAQUIN [Suspect]
     Indication: PNEUMONIA
     Route: 042
     Dates: start: 20140106, end: 20140117

REACTIONS (9)
  - General physical health deterioration [None]
  - Atrial fibrillation [None]
  - Atrial flutter [None]
  - Local swelling [None]
  - Movement disorder [None]
  - Pain in extremity [None]
  - Neuropathy peripheral [None]
  - Paraesthesia [None]
  - Local swelling [None]
